FAERS Safety Report 11072042 (Version 1)
Quarter: 2015Q2

REPORT INFORMATION
  Report Type: Spontaneous
  Country: US (occurrence: US)
  Receive Date: 20150428
  Receipt Date: 20150428
  Transmission Date: 20150821
  Serious: No
  Sender: FDA-Public Use
  Company Number: US-BAUSCH-BL-2014-011098

PATIENT
  Age: 54 Year
  Sex: Female
  Weight: 65.83 kg

DRUGS (2)
  1. LOTEMAX [Suspect]
     Active Substance: LOTEPREDNOL ETABONATE
     Indication: EYE DISCHARGE
     Route: 047
     Dates: start: 20141210, end: 20141215
  2. BLINK ARTIFICIAL TEARS [Concomitant]
     Indication: PRODUCT USED FOR UNKNOWN INDICATION

REACTIONS (5)
  - Nasopharyngitis [Recovered/Resolved]
  - Foreign body sensation in eyes [Recovered/Resolved]
  - Headache [Recovered/Resolved]
  - Eye pain [Recovered/Resolved]
  - Vision blurred [Recovered/Resolved]

NARRATIVE: CASE EVENT DATE: 20141212
